FAERS Safety Report 12500416 (Version 4)
Quarter: 2017Q4

REPORT INFORMATION
  Report Type: Spontaneous
  Country: US (occurrence: US)
  Receive Date: 20160627
  Receipt Date: 20171129
  Transmission Date: 20180320
  Serious: Yes (Hospitalization, Other)
  Sender: FDA-Public Use
  Company Number: US-PFIZER INC-2016309953

PATIENT
  Age: 35 Year
  Sex: Female
  Weight: 77.11 kg

DRUGS (13)
  1. VFEND [Suspect]
     Active Substance: VORICONAZOLE
     Dosage: 600 MG, DAILY
     Dates: start: 2016
  2. VORICONAZOLE. [Suspect]
     Active Substance: VORICONAZOLE
     Indication: FUNGAL ENDOCARDITIS
     Dosage: UNK
     Route: 042
     Dates: start: 201604
  3. VFEND [Suspect]
     Active Substance: VORICONAZOLE
     Dosage: 400 MG, DAILY
     Dates: start: 2016
  4. GABAPENTIN. [Concomitant]
     Active Substance: GABAPENTIN
     Dosage: 600 MG, 2X/DAY
     Route: 048
     Dates: start: 201604
  5. METOPROLOL. [Concomitant]
     Active Substance: METOPROLOL
     Indication: BLOOD PRESSURE ABNORMAL
     Dosage: 25 MG, HALF A TABLET TWICE A DAY
     Route: 048
     Dates: start: 20160418, end: 201607
  6. ASPIRIN. [Concomitant]
     Active Substance: ASPIRIN
     Indication: ANTICOAGULANT THERAPY
     Dosage: 81 MG, ONCE A DAY
     Route: 048
     Dates: start: 20160418
  7. METOPROLOL. [Concomitant]
     Active Substance: METOPROLOL
     Indication: ANTICOAGULANT THERAPY
  8. GABAPENTIN. [Concomitant]
     Active Substance: GABAPENTIN
     Indication: NEUROPATHY PERIPHERAL
     Dosage: 300 MG, 3X/DAY
     Route: 048
     Dates: start: 20160418, end: 201607
  9. VFEND [Suspect]
     Active Substance: VORICONAZOLE
     Dosage: 200 MG, 2X/DAY
     Dates: start: 20160418
  10. VFEND [Suspect]
     Active Substance: VORICONAZOLE
     Indication: FUNGAL ENDOCARDITIS
     Dosage: 50 MG TABLET, FIVE AT A TIME (250 MG TWICE A DAY)
     Dates: start: 20160422
  11. VFEND [Suspect]
     Active Substance: VORICONAZOLE
     Dosage: 300 MG, 2X/DAY
     Route: 048
     Dates: start: 201604
  12. CLOPIDOGREL [Concomitant]
     Active Substance: CLOPIDOGREL BISULFATE
     Indication: BLOOD PRESSURE ABNORMAL
     Dosage: 75 MG, ONE TIME A DAY, PILL
     Route: 048
     Dates: start: 20160418, end: 201607
  13. CLOPIDOGREL [Concomitant]
     Active Substance: CLOPIDOGREL BISULFATE
     Indication: ANTICOAGULANT THERAPY

REACTIONS (10)
  - Blindness [Unknown]
  - Staphylococcal infection [Unknown]
  - Somnolence [Recovered/Resolved]
  - Fatigue [Not Recovered/Not Resolved]
  - Dizziness [Recovering/Resolving]
  - Vision blurred [Not Recovered/Not Resolved]
  - Pigmentation disorder [Not Recovered/Not Resolved]
  - Skin cancer [Not Recovered/Not Resolved]
  - Amnesia [Not Recovered/Not Resolved]
  - Sunburn [Not Recovered/Not Resolved]

NARRATIVE: CASE EVENT DATE: 2016
